FAERS Safety Report 10622461 (Version 1)
Quarter: 2014Q4

REPORT INFORMATION
  Report Type: Spontaneous
  Country: US (occurrence: US)
  Receive Date: 20141203
  Receipt Date: 20141203
  Transmission Date: 20150529
  Serious: Yes (Hospitalization)
  Sender: FDA-Public Use
  Company Number: US-GLENMARK GENERICS INC.-2014GMK012245

PATIENT
  Age: 65 Year
  Sex: Female
  Weight: 102 kg

DRUGS (10)
  1. GABAPENTIN. [Concomitant]
     Active Substance: GABAPENTIN
     Indication: DIABETES MELLITUS
     Dosage: 2 TABLETS IN MORNING, 1 IN AFTERNOON AND 3 IN THE NIGHT
     Route: 048
  2. CLONAZEPAM. [Concomitant]
     Active Substance: CLONAZEPAM
     Indication: SLEEP DISORDER
     Dosage: 1 MG, EVERY DAY
     Route: 048
  3. AMITRIPTYLINE [Concomitant]
     Active Substance: AMITRIPTYLINE
     Indication: SLEEP DISORDER
     Dosage: 1 DF, EVERY NIGHT
     Route: 048
  4. SIMVASTATIN. [Concomitant]
     Active Substance: SIMVASTATIN
     Indication: BLOOD CHOLESTEROL ABNORMAL
     Dosage: 1 DF, OD (EVERY NIGHT AT BEDTIME)
     Route: 048
  5. CARVEDILOL. [Suspect]
     Active Substance: CARVEDILOL
     Indication: HYPERTENSION
     Dosage: 1 DF, BID
     Route: 048
  6. HUMULIN N [Concomitant]
     Active Substance: INSULIN HUMAN
     Indication: DIABETES MELLITUS
     Dosage: 70 UNITS IN THE MORNING AND 80 UNITS IN THE EVENING
     Route: 058
  7. LOPERAMIDE HCL [Concomitant]
     Active Substance: LOPERAMIDE HYDROCHLORIDE
     Indication: DIARRHOEA
     Dosage: 2 MG, PRN
     Route: 048
  8. LYRICA [Suspect]
     Active Substance: PREGABALIN
     Indication: DIABETIC NEUROPATHY
     Dosage: 1 DF, BID
     Route: 048
     Dates: start: 2014
  9. HUMULIN R [Concomitant]
     Active Substance: INSULIN HUMAN
     Indication: DIABETES MELLITUS
     Dosage: 25 UNITS IN THE MORNING; 35 UNITS IN THE NIGHT
     Route: 058
  10. ASPIRIN. [Concomitant]
     Active Substance: ASPIRIN
     Indication: THROMBOSIS PROPHYLAXIS
     Dosage: 1 DF, OD (AT NIGHT)
     Route: 048

REACTIONS (5)
  - Upper limb fracture [Not Recovered/Not Resolved]
  - Fall [Unknown]
  - Dizziness [Unknown]
  - Pain in extremity [Unknown]
  - Hypotension [Unknown]

NARRATIVE: CASE EVENT DATE: 20140901
